FAERS Safety Report 4416434-5 (Version None)
Quarter: 2004Q3

REPORT INFORMATION
  Report Type: 
  Country: None (occurrence: None)
  Receive Date: 20040802
  Receipt Date: 20040720
  Transmission Date: 20050211
  Serious: Yes (Life-Threatening, Hospitalization)
  Sender: FDA-Public Use
  Company Number: 2004224472IT

PATIENT
  Age: 57 Year
  Sex: Male
  Weight: 65 kg

DRUGS (2)
  1. VERAPAMIL [Suspect]
     Dosage: 1600 MG, SINGLE, ORAL
     Route: 048
  2. EUPRES (ATENOLOL, CHLORTHALIDONE) TABLET [Suspect]
     Dosage: 2800 MG, SINGLE, ORAL
     Route: 048

REACTIONS (8)
  - ATRIOVENTRICULAR BLOCK FIRST DEGREE [None]
  - CARDIOGENIC SHOCK [None]
  - GLASGOW COMA SCALE ABNORMAL [None]
  - INTENTIONAL OVERDOSE [None]
  - MULTIPLE DRUG OVERDOSE [None]
  - PULMONARY OEDEMA [None]
  - SINUS BRADYCARDIA [None]
  - SUICIDE ATTEMPT [None]
